FAERS Safety Report 9380207 (Version 1)
Quarter: 2013Q3

REPORT INFORMATION
  Report Type: Spontaneous
  Country: US (occurrence: None)
  Receive Date: 20130701
  Receipt Date: 20130701
  Transmission Date: 20140515
  Serious: Yes (Other)
  Sender: FDA-Public Use
  Company Number: None

PATIENT
  Age: 55 Year
  Sex: Female
  Weight: 61.24 kg

DRUGS (1)
  1. EFFEXOR XR 75 MG, PFIZER [Suspect]
     Indication: DEPRESSION
     Dates: start: 20120701, end: 20130501

REACTIONS (6)
  - Influenza like illness [None]
  - Crying [None]
  - Anger [None]
  - Homicidal ideation [None]
  - Suicidal ideation [None]
  - Drug withdrawal syndrome [None]
